FAERS Safety Report 10997639 (Version 1)
Quarter: 2015Q2

REPORT INFORMATION
  Report Type: Spontaneous
  Country: US (occurrence: US)
  Receive Date: 20150408
  Receipt Date: 20150408
  Transmission Date: 20150821
  Serious: No
  Sender: FDA-Public Use
  Company Number: US-BANPHARM-20142916

PATIENT
  Age: 71 Year
  Sex: Female

DRUGS (7)
  1. WATER PILL [Concomitant]
     Active Substance: UNSPECIFIED INGREDIENT
  2. WALGREENS STOOL SOFTENER [Concomitant]
  3. ALEVE [Suspect]
     Active Substance: NAPROXEN SODIUM
     Indication: ARTHRALGIA
     Dosage: 1 DF, BID,
     Route: 048
     Dates: start: 2010, end: 2010
  4. TROSPIUM [Concomitant]
     Active Substance: TROSPIUM
  5. SPRING VALLEY CALCIUM [Concomitant]
  6. UNKNOWN BLOOD PRESSURE MEDICATION [Concomitant]
     Active Substance: UNSPECIFIED INGREDIENT
  7. COQ10 [Concomitant]
     Active Substance: UBIDECARENONE

REACTIONS (2)
  - Incorrect drug administration duration [Unknown]
  - Nausea [Recovered/Resolved]

NARRATIVE: CASE EVENT DATE: 2010
